FAERS Safety Report 26095888 (Version 1)
Quarter: 2025Q4

REPORT INFORMATION
  Report Type: Spontaneous
  Country: CA (occurrence: CA)
  Receive Date: 20251127
  Receipt Date: 20251127
  Transmission Date: 20260118
  Serious: Yes (Hospitalization)
  Sender: TEVA
  Company Number: CA-TEVA-VS-3397317

PATIENT
  Age: 19 Year
  Sex: Male
  Weight: 63 kg

DRUGS (18)
  1. FLUVOXAMINE [Suspect]
     Active Substance: FLUVOXAMINE
     Indication: Psychiatric care
     Route: 048
  2. LORAZEPAM [Interacting]
     Active Substance: LORAZEPAM
     Indication: Agitation
     Dosage: DOSE FORM: NOT SPECIFIED
     Route: 030
  3. FLUVOXAMINE [Interacting]
     Active Substance: FLUVOXAMINE
     Indication: Psychiatric care
     Route: 048
  4. CLOZAPINE [Interacting]
     Active Substance: CLOZAPINE
     Indication: Psychiatric care
     Route: 048
  5. CLOZAPINE [Interacting]
     Active Substance: CLOZAPINE
     Indication: Psychiatric care
     Route: 048
  6. CLOZAPINE [Interacting]
     Active Substance: CLOZAPINE
     Indication: Psychiatric care
     Route: 065
  7. BENZTROPINE MESYLATE [Interacting]
     Active Substance: BENZTROPINE MESYLATE
     Indication: Extrapyramidal disorder
     Dosage: DOSE FORM: NOT SPECIFIED
     Route: 048
  8. BENZTROPINE MESYLATE [Interacting]
     Active Substance: BENZTROPINE MESYLATE
     Indication: Extrapyramidal disorder
     Dosage: DOSE FORM: NOT SPECIFIED
     Route: 030
  9. LOXAPINE [Interacting]
     Active Substance: LOXAPINE
     Indication: Agitation
     Dosage: DOSE FORM: NOT SPECIFIED
     Route: 048
  10. LOXAPINE [Interacting]
     Active Substance: LOXAPINE
     Indication: Agitation
     Dosage: DOSE FORM: NOT SPECIFIED
     Route: 048
  11. POLYETHYLENE GLYCOL 3350 [Concomitant]
     Active Substance: POLYETHYLENE GLYCOL 3350
     Indication: Product used for unknown indication
     Dosage: DOSE FORM: NOT SPECIFIED
     Route: 065
  12. PROPRANOLOL [Suspect]
     Active Substance: PROPRANOLOL HYDROCHLORIDE
     Indication: Product used for unknown indication
     Dosage: DOSE FORM: NOT SPECIFIED
     Route: 048
  13. LORAZEPAM [Suspect]
     Active Substance: LORAZEPAM
     Indication: Agitation
     Dosage: DOSE FORM: NOT SPECIFIED
     Route: 048
  14. QUETIAPINE [Suspect]
     Active Substance: QUETIAPINE
     Indication: Psychiatric care
     Route: 048
  15. QUETIAPINE [Suspect]
     Active Substance: QUETIAPINE
     Indication: Psychiatric care
     Route: 048
  16. QUETIAPINE [Suspect]
     Active Substance: QUETIAPINE
     Indication: Psychiatric care
     Route: 048
  17. QUETIAPINE [Suspect]
     Active Substance: QUETIAPINE
     Indication: Psychiatric care
     Route: 048
  18. REXULTI [Concomitant]
     Active Substance: BREXPIPRAZOLE
     Indication: Product used for unknown indication
     Route: 065

REACTIONS (15)
  - Condition aggravated [Unknown]
  - Hypoaesthesia [Unknown]
  - Dysphemia [Unknown]
  - Thinking abnormal [Unknown]
  - Treatment noncompliance [Unknown]
  - Depression [Unknown]
  - Constipation [Unknown]
  - Mental disorder [Unknown]
  - Drug level below therapeutic [Unknown]
  - Sedation [Unknown]
  - Memory impairment [Unknown]
  - Fatigue [Unknown]
  - Drug interaction [Unknown]
  - Confusional state [Unknown]
  - Somnolence [Unknown]
